FAERS Safety Report 24987334 (Version 1)
Quarter: 2025Q1

REPORT INFORMATION
  Report Type: Spontaneous
  Country: US (occurrence: US)
  Receive Date: 20250219
  Receipt Date: 20250219
  Transmission Date: 20250409
  Serious: No
  Sender: PFIZER
  Company Number: US-PFIZER INC-PV202400023793

PATIENT
  Age: 86 Year
  Sex: Female
  Weight: 52.62 kg

DRUGS (3)
  1. BRAFTOVI [Suspect]
     Active Substance: ENCORAFENIB
     Indication: Colon cancer
     Dosage: 300 MG, 1X/DAY, TAKE 4 CAPSULES
     Route: 048
  2. BRAFTOVI [Suspect]
     Active Substance: ENCORAFENIB
     Dosage: 300 MG, 1X/DAY, TAKE 4 CAPSULES
     Route: 048
     Dates: start: 20240423
  3. BRAFTOVI [Suspect]
     Active Substance: ENCORAFENIB
     Dosage: 225 MG, 1X/DAY (3 CAPSULES DAILY)
     Route: 048

REACTIONS (8)
  - Neoplasm progression [Unknown]
  - Muscle spasms [Unknown]
  - Pain [Unknown]
  - Product prescribing error [Unknown]
  - Poor quality product administered [Unknown]
  - Product physical issue [Unknown]
  - Accidental exposure to product [Unknown]
  - Exposure via skin contact [Unknown]

NARRATIVE: CASE EVENT DATE: 20240101
